FAERS Safety Report 4881152-6 (Version None)
Quarter: 2005Q4

REPORT INFORMATION
  Report Type: 
  Country: None (occurrence: None)
  Receive Date: 20051223
  Receipt Date: 20050906
  Transmission Date: 20060501
  Serious: No
  Sender: FDA-Public Use
  Company Number: 05P-163-0310401-00

PATIENT
  Age: 55 Year
  Sex: Male
  Weight: 70.3075 kg

DRUGS (11)
  1. HUMIRA [Suspect]
     Indication: RHEUMATOID ARTHRITIS
     Dosage: 40 MG, 1 IN 2 WK, SUBCUTANEOUS
     Route: 058
     Dates: start: 20050201
  2. SULFASALAZINE [Concomitant]
  3. TRAZODONE [Concomitant]
  4. PARACETAMOL [Concomitant]
  5. LEXAPRO [Concomitant]
  6. ACETYLSALICYLIC ACID SRT [Concomitant]
  7. CLONAZEPAM [Concomitant]
  8. MULTIVITAMIN [Concomitant]
  9. ASCORBIC ACID [Concomitant]
  10. VITAMIN B COMPLEX CAP [Concomitant]
  11. PREDNISONE [Concomitant]

REACTIONS (4)
  - ARTHRALGIA [None]
  - DRUG INEFFECTIVE [None]
  - INJECTION SITE BRUISING [None]
  - JOINT SWELLING [None]
